FAERS Safety Report 25707628 (Version 1)
Quarter: 2025Q3

REPORT INFORMATION
  Report Type: Spontaneous
  Country: US (occurrence: US)
  Receive Date: 20250820
  Receipt Date: 20250820
  Transmission Date: 20251021
  Serious: Yes (Death, Other)
  Sender: AMGEN
  Company Number: US-AMGEN-USASP2025162410

PATIENT

DRUGS (7)
  1. PREDNISONE [Suspect]
     Active Substance: PREDNISONE
     Indication: Follicular lymphoma
     Route: 065
  2. PREDNISONE [Suspect]
     Active Substance: PREDNISONE
     Indication: Diffuse large B-cell lymphoma
  3. RITUXIMAB [Suspect]
     Active Substance: RITUXIMAB
     Indication: Follicular lymphoma
     Route: 065
  4. RITUXIMAB [Suspect]
     Active Substance: RITUXIMAB
     Indication: Diffuse large B-cell lymphoma
  5. CYCLOPHOSPHAMIDE [Concomitant]
     Active Substance: CYCLOPHOSPHAMIDE
  6. DOXORUBICIN [Concomitant]
     Active Substance: DOXORUBICIN
  7. VINCRISTINE [Concomitant]
     Active Substance: VINCRISTINE

REACTIONS (5)
  - Death [Fatal]
  - High-grade B-cell lymphoma [Unknown]
  - Diffuse large B-cell lymphoma [Unknown]
  - Follicular lymphoma [Unknown]
  - Ill-defined disorder [Unknown]
